FAERS Safety Report 17709784 (Version 3)
Quarter: 2020Q2

REPORT INFORMATION
  Report Type: Other
  Country: FR (occurrence: FR)
  Receive Date: 20200427
  Receipt Date: 20200521
  Transmission Date: 20200714
  Serious: Yes (Hospitalization, Other)
  Sender: FDA-Public Use
  Company Number: FR-ASTELLAS-2020US014413

PATIENT
  Age: 59 Year
  Sex: Female
  Weight: 58 kg

DRUGS (4)
  1. ADVAGRAF [Suspect]
     Active Substance: TACROLIMUS
     Indication: LUNG TRANSPLANT
     Route: 048
     Dates: end: 20200330
  2. CERTICAN [Interacting]
     Active Substance: EVEROLIMUS
     Indication: LUNG TRANSPLANT
     Route: 048
  3. ADVAGRAF [Interacting]
     Active Substance: TACROLIMUS
     Dosage: UNK UNK, UNKNOWN FREQ.
     Route: 048
  4. KALETRA [Interacting]
     Active Substance: LOPINAVIR\RITONAVIR
     Indication: CORONAVIRUS INFECTION
     Dosage: 2 DF (200 MG/50 MG), EVERY 12 HOURS
     Route: 048
     Dates: start: 20200328, end: 20200401

REACTIONS (8)
  - Nausea [Recovered/Resolved]
  - Inhibitory drug interaction [Recovered/Resolved]
  - Vomiting [Recovered/Resolved]
  - Immunosuppressant drug level increased [Recovered/Resolved]
  - COVID-19 [Unknown]
  - Headache [Recovered/Resolved]
  - Headache [Unknown]
  - Product use in unapproved indication [Unknown]

NARRATIVE: CASE EVENT DATE: 20200328
